FAERS Safety Report 6953386-8 (Version None)
Quarter: 2010Q3

REPORT INFORMATION
  Report Type: 
  Country: None (occurrence: None)
  Receive Date: 20100829
  Receipt Date: 20100610
  Transmission Date: 20110219
  Serious: No
  Sender: FDA-Public Use
  Company Number: US-ABBOTT-10P-163-0650682-00

PATIENT
  Sex: Male
  Weight: 90.8 kg

DRUGS (9)
  1. NIASPAN [Suspect]
     Indication: DYSLIPIDAEMIA
     Dosage: BID
     Route: 048
     Dates: start: 20080101
  2. NIASPAN [Suspect]
     Indication: TYPE IIA HYPERLIPIDAEMIA
     Dosage: 3 1/2 TABLETS AT BEDTIME
     Route: 048
     Dates: start: 20090101
  3. LIPITOR [Concomitant]
     Indication: PRODUCT USED FOR UNKNOWN INDICATION
     Route: 048
  4. LISINOPRIL [Concomitant]
     Indication: PRODUCT USED FOR UNKNOWN INDICATION
  5. AVANDIA [Concomitant]
     Indication: PRODUCT USED FOR UNKNOWN INDICATION
  6. COENZYME Q10 [Concomitant]
     Indication: PRODUCT USED FOR UNKNOWN INDICATION
  7. THYROID MEDICATION [Concomitant]
     Indication: THYROID DISORDER
  8. FISH OIL [Concomitant]
     Indication: PRODUCT USED FOR UNKNOWN INDICATION
  9. ASPIRIN [Concomitant]
     Indication: PRODUCT USED FOR UNKNOWN INDICATION

REACTIONS (3)
  - BLOOD GLUCOSE INCREASED [None]
  - FLUSHING [None]
  - MUSCULAR WEAKNESS [None]
